FAERS Safety Report 5611973-3 (Version None)
Quarter: 2008Q1

REPORT INFORMATION
  Report Type: 
  Country: None (occurrence: None)
  Receive Date: 20080204
  Receipt Date: 20080128
  Transmission Date: 20080703
  Serious: Yes (Hospitalization)
  Sender: FDA-Public Use
  Company Number: US-JNJFOC-20080102137

PATIENT
  Sex: Female
  Weight: 35.2 kg

DRUGS (4)
  1. INFLIXIMAB [Suspect]
     Route: 042
  2. INFLIXIMAB [Suspect]
     Indication: INFLAMMATORY BOWEL DISEASE
     Route: 042
  3. 5 ASA [Concomitant]
  4. MERCAPTOPURINE [Concomitant]

REACTIONS (3)
  - CONSTIPATION [None]
  - CROHN'S DISEASE [None]
  - FISTULA [None]
